FAERS Safety Report 5801967-7 (Version None)
Quarter: 2008Q3

REPORT INFORMATION
  Report Type: 
  Country: None (occurrence: None)
  Receive Date: 20080707
  Receipt Date: 20080701
  Transmission Date: 20090109
  Serious: Yes (Other)
  Sender: FDA-Public Use
  Company Number: US-TYCO HEALTHCARE/MALLINCKRODT-T200801054

PATIENT

DRUGS (12)
  1. RESTORIL [Suspect]
     Indication: DEPRESSION
     Dosage: UNK, QD
     Dates: start: 20031001, end: 20070501
  2. RESTORIL [Suspect]
     Indication: ANXIETY
  3. XANAX [Suspect]
     Indication: DEPRESSION
     Dosage: UNK, QD
     Dates: start: 20031001, end: 20070501
  4. XANAX [Suspect]
     Indication: ANXIETY
  5. LEXAPRO [Suspect]
     Indication: DEPRESSION
     Dosage: UNK, QD
     Dates: start: 20031001, end: 20060101
  6. LEXAPRO [Suspect]
     Indication: ANXIETY
  7. SEROQUEL [Suspect]
     Indication: DEPRESSION
     Dosage: UNK, QD
     Dates: start: 20031001, end: 20070501
  8. SEROQUEL [Suspect]
     Indication: ANXIETY
  9. WELLBUTRIN [Suspect]
     Indication: DEPRESSION
     Dosage: UNK, QD
     Dates: start: 20031001, end: 20070501
  10. WELLBUTRIN [Suspect]
     Indication: ANXIETY
  11. CYMBALTA [Suspect]
     Indication: DEPRESSION
     Dosage: UNK, QD
     Dates: start: 20031001, end: 20070501
  12. CYMBALTA [Suspect]
     Indication: ANXIETY

REACTIONS (33)
  - ANXIETY [None]
  - BLOOD CHOLESTEROL INCREASED [None]
  - BLOOD PRESSURE INCREASED [None]
  - BLOOD TRIGLYCERIDES INCREASED [None]
  - CONFUSIONAL STATE [None]
  - CONVULSION [None]
  - DECREASED ACTIVITY [None]
  - DEPRESSION [None]
  - DISORIENTATION [None]
  - FEELING ABNORMAL [None]
  - HALLUCINATION [None]
  - HEADACHE [None]
  - HYPERHIDROSIS [None]
  - INCORRECT DOSE ADMINISTERED [None]
  - INSOMNIA [None]
  - MENTAL DISORDER [None]
  - NIGHTMARE [None]
  - PAIN [None]
  - PHYSICAL EXAMINATION ABNORMAL [None]
  - REFUSAL OF TREATMENT BY PATIENT [None]
  - RENAL FAILURE [None]
  - ROAD TRAFFIC ACCIDENT [None]
  - SCREAMING [None]
  - SLEEP APNOEA SYNDROME [None]
  - SLEEP DISORDER [None]
  - STRESS [None]
  - SUICIDAL IDEATION [None]
  - SUICIDE ATTEMPT [None]
  - TARDIVE DYSKINESIA [None]
  - THYROID DISORDER [None]
  - TREATMENT NONCOMPLIANCE [None]
  - WEIGHT DECREASED [None]
  - WITHDRAWAL SYNDROME [None]
